FAERS Safety Report 5650539-6 (Version None)
Quarter: 2008Q1

REPORT INFORMATION
  Report Type: 
  Country: None (occurrence: None)
  Receive Date: 20080305
  Receipt Date: 20080227
  Transmission Date: 20080703
  Serious: Yes (Death)
  Sender: FDA-Public Use
  Company Number: US-BAYER-200815236NA

PATIENT
  Age: 75 Year
  Sex: Male

DRUGS (4)
  1. LEUKINE [Suspect]
     Indication: MYELODYSPLASTIC SYNDROME
  2. NEUPOGEN [Suspect]
     Indication: MYELODYSPLASTIC SYNDROME
  3. NEUPOGEN [Suspect]
  4. NEUPOGEN [Suspect]

REACTIONS (5)
  - HISTIOCYTOSIS HAEMATOPHAGIC [None]
  - SEPSIS [None]
  - SPLENOMEGALY [None]
  - THROMBOCYTOPENIA [None]
  - VENTRICULAR ARRHYTHMIA [None]
